FAERS Safety Report 7521249-5 (Version None)
Quarter: 2011Q2

REPORT INFORMATION
  Report Type: 
  Country: None (occurrence: None)
  Receive Date: 20110603
  Receipt Date: 20101215
  Transmission Date: 20111010
  Serious: Yes (Disabling, Other)
  Sender: FDA-Public Use
  Company Number: US-BAYER-201013967BCC

PATIENT
  Age: 19 Year
  Sex: Female
  Weight: 47.727 kg

DRUGS (6)
  1. LOESTRIN FE 1/20 [Concomitant]
     Route: 065
     Dates: start: 20100331
  2. MIDOL MENSTRUAL COMPLETE CAPLETS [Suspect]
     Dosage: CONSUMER TOOK 2 CAPLETS EVERY 6 TO 8 HOURS
     Route: 048
     Dates: start: 20100221, end: 20100225
  3. IMODIUM [Concomitant]
     Dosage: DAILY DOSE 1 DF
     Route: 065
     Dates: start: 20100326
  4. MIDOL MENSTRUAL COMPLETE CAPLETS [Suspect]
     Indication: DYSMENORRHOEA
     Dosage: CONSUMER TOOK 2 CAPLETS EVERY 6 TO 8 HOURS
     Route: 048
     Dates: start: 20100116, end: 20100120
  5. MIDOL MENSTRUAL COMPLETE CAPLETS [Suspect]
     Dosage: CONSUMER TOOK 2 CAPLETS EVERY 6 TO 8 HOURS
     Route: 048
     Dates: start: 20100325, end: 20100326
  6. ACETAMINOPHEN [Concomitant]
     Indication: DYSMENORRHOEA
     Dates: start: 20100401, end: 20100415

REACTIONS (9)
  - DIZZINESS [None]
  - FATIGUE [None]
  - DIARRHOEA [None]
  - HYPOTENSION [None]
  - HEADACHE [None]
  - DYSMENORRHOEA [None]
  - DECREASED APPETITE [None]
  - DEHYDRATION [None]
  - NAUSEA [None]
